FAERS Safety Report 13020186 (Version 1)
Quarter: 2016Q4

REPORT INFORMATION
  Report Type: Spontaneous
  Country: GB (occurrence: GB)
  Receive Date: 20161212
  Receipt Date: 20161212
  Transmission Date: 20170207
  Serious: Yes (Other)
  Sender: FDA-Public Use
  Company Number: GB-GILEAD-2016-0247627

PATIENT
  Age: 13 Year
  Sex: Female

DRUGS (3)
  1. CAYSTON [Suspect]
     Active Substance: AZTREONAM
     Indication: CYSTIC FIBROSIS
     Dosage: ^REGULAR^, 75 MG, TID, ^HAD NOVEMBER OFF^
     Route: 055
     Dates: start: 201610
  2. CAYSTON [Suspect]
     Active Substance: AZTREONAM
     Indication: PSEUDOMONAS INFECTION
  3. COLOMYCIN                          /00013203/ [Concomitant]
     Active Substance: COLISTIN

REACTIONS (1)
  - Cystic fibrosis lung [Not Recovered/Not Resolved]
